FAERS Safety Report 6490241-4 (Version None)
Quarter: 2009Q4

REPORT INFORMATION
  Report Type: 
  Country: None (occurrence: None)
  Receive Date: 20091211
  Receipt Date: 20091205
  Transmission Date: 20100525
  Serious: Yes (Other)
  Sender: FDA-Public Use
  Company Number: FR-ROCHE-673823

PATIENT
  Age: 82 Year
  Sex: Male

DRUGS (1)
  1. TAMIFLU [Suspect]
     Route: 065

REACTIONS (2)
  - CONFUSIONAL STATE [None]
  - HALLUCINATION [None]
